FAERS Safety Report 4483719-6 (Version None)
Quarter: 2004Q4

REPORT INFORMATION
  Report Type: 
  Country: None (occurrence: None)
  Receive Date: 20041021
  Receipt Date: 20041021
  Transmission Date: 20050328
  Serious: Yes (Hospitalization)
  Sender: FDA-Public Use
  Company Number: None

PATIENT
  Sex: Male
  Weight: 70.3075 kg

DRUGS (3)
  1. CETUXIMAB [Suspect]
     Indication: COLORECTAL CANCER
     Dosage: 250 MG/M2 PER WEEK PO
     Route: 048
     Dates: start: 20041012
  2. OXALIPLATIN [Suspect]
     Indication: COLORECTAL CANCER
     Dosage: 156 BW 85 MG /M2 IV
     Route: 042
     Dates: start: 20041015
  3. XELODA [Suspect]
     Indication: COLORECTAL CANCER
     Dosage: 2000 MG BID
     Dates: start: 20041015

REACTIONS (1)
  - SYNCOPE VASOVAGAL [None]
